FAERS Safety Report 7394228-9 (Version None)
Quarter: 2011Q2

REPORT INFORMATION
  Report Type: 
  Country: None (occurrence: None)
  Receive Date: 20110405
  Receipt Date: 20110331
  Transmission Date: 20111010
  Serious: Yes (Disabling, Other)
  Sender: FDA-Public Use
  Company Number: GB-PFIZER INC-2011072503

PATIENT
  Age: 59 Year
  Sex: Female
  Weight: 57 kg

DRUGS (2)
  1. DICLOFENAC SODIUM [Concomitant]
     Dosage: UNK
     Dates: start: 20101125
  2. CHAMPIX [Suspect]
     Dosage: UNK
     Dates: start: 20110203, end: 20110302

REACTIONS (3)
  - CHEST DISCOMFORT [None]
  - DIPLOPIA [None]
  - VISION BLURRED [None]
